FAERS Safety Report 4339548-7 (Version None)
Quarter: 2004Q2

REPORT INFORMATION
  Report Type: 
  Country: None (occurrence: None)
  Receive Date: 20040412
  Receipt Date: 20040331
  Transmission Date: 20050107
  Serious: Yes (Hospitalization)
  Sender: FDA-Public Use
  Company Number: 234791

PATIENT
  Age: 57 Year
  Sex: Male

DRUGS (1)
  1. NOVOMIX 30 FLEX PEN               (INSULIN ASPART) [Suspect]
     Indication: ILL-DEFINED DISORDER

REACTIONS (5)
  - DIZZINESS [None]
  - MEDICATION ERROR [None]
  - MUSCLE SPASMS [None]
  - PHARMACEUTICAL PRODUCT COMPLAINT [None]
  - POST-TRAUMATIC STRESS DISORDER [None]
